FAERS Safety Report 4514732-8 (Version None)
Quarter: 2004Q4

REPORT INFORMATION
  Report Type: 
  Country: None (occurrence: None)
  Receive Date: 20041124
  Receipt Date: 20041124
  Transmission Date: 20050328
  Serious: Yes (Other)
  Sender: FDA-Public Use
  Company Number: None

PATIENT
  Sex: Female
  Weight: 113.3993 kg

DRUGS (1)
  1. KETEK [Suspect]
     Indication: EAR INFECTION
     Dosage: 800 MG DAILY ORAL
     Route: 048
     Dates: start: 20041015, end: 20041018

REACTIONS (2)
  - DIARRHOEA [None]
  - VISION BLURRED [None]
